FAERS Safety Report 16572087 (Version 1)
Quarter: 2019Q3

REPORT INFORMATION
  Report Type: Spontaneous
  Country: DE (occurrence: DE)
  Receive Date: 20190715
  Receipt Date: 20190715
  Transmission Date: 20191004
  Serious: Yes (Hospitalization)
  Sender: FDA-Public Use
  Company Number: DE-TEVA-2019-DE-1077072

PATIENT
  Age: 11 Year
  Sex: Female
  Weight: 60 kg

DRUGS (2)
  1. BUDESONID EASYHALER [Suspect]
     Active Substance: BUDESONIDE
     Indication: ASTHMA
     Dosage: DAILY DOSE: 200 ?G MICROGRAM(S) EVERY 2 DAYS
     Route: 055
  2. SALBUTAMOL [Concomitant]
     Active Substance: ALBUTEROL
     Indication: ASTHMA
     Dosage: IF NECESSARY
     Route: 055

REACTIONS (6)
  - Asthma [Recovered/Resolved]
  - Treatment noncompliance [Recovered/Resolved]
  - Product administration error [Recovered/Resolved]
  - Bronchial obstruction [Recovered/Resolved]
  - Product administration interrupted [Recovered/Resolved]
  - Tetany [Recovered/Resolved]

NARRATIVE: CASE EVENT DATE: 201809
